FAERS Safety Report 12710570 (Version 2)
Quarter: 2016Q4

REPORT INFORMATION
  Report Type: Spontaneous
  Country: US (occurrence: US)
  Receive Date: 20160902
  Receipt Date: 20161012
  Transmission Date: 20170207
  Serious: No
  Sender: FDA-Public Use
  Company Number: US-BEH-2016073168

PATIENT
  Sex: Female
  Weight: 56.69 kg

DRUGS (18)
  1. DILTIAZEM. [Concomitant]
     Active Substance: DILTIAZEM
  2. BACLOFEN. [Concomitant]
     Active Substance: BACLOFEN
  3. ALPRAZOLAM. [Concomitant]
     Active Substance: ALPRAZOLAM
  4. GABAPENTIN. [Concomitant]
     Active Substance: GABAPENTIN
  5. PAROXETINE. [Concomitant]
     Active Substance: PAROXETINE
  6. ACIDOPHILUS [Concomitant]
     Active Substance: LACTOBACILLUS ACIDOPHILUS
  7. PRIVIGEN [Suspect]
     Active Substance: HUMAN IMMUNOGLOBULIN G
     Indication: MULTIPLE SCLEROSIS
     Dosage: 60G, EVERY 4 WEEKS, SPLIT INTO 2 CONSECUTIVE DAYS WITH 30 GM EACH
     Route: 042
     Dates: start: 20160531
  8. FORTAZ [Concomitant]
     Active Substance: CEFTAZIDIME SODIUM
  9. PANTOPRAZOLE [Concomitant]
     Active Substance: PANTOPRAZOLE SODIUM
  10. COREG [Concomitant]
     Active Substance: CARVEDILOL
  11. VICODIN [Concomitant]
     Active Substance: ACETAMINOPHEN\HYDROCODONE BITARTRATE
  12. LISINOPRIL                         /00894002/ [Concomitant]
     Active Substance: LISINOPRIL
  13. METHENAMINE [Concomitant]
     Active Substance: METHENAMINE
  14. TERAZOSIN [Concomitant]
     Active Substance: TERAZOSIN\TERAZOSIN HYDROCHLORIDE
  15. MYRBETRIQ [Concomitant]
     Active Substance: MIRABEGRON
  16. EPINEPHRINE. [Concomitant]
     Active Substance: EPINEPHRINE
  17. PROTONIX [Concomitant]
     Active Substance: PANTOPRAZOLE SODIUM
  18. PAXIL [Concomitant]
     Active Substance: PAROXETINE HYDROCHLORIDE

REACTIONS (1)
  - Alopecia areata [Unknown]
